FAERS Safety Report 17242870 (Version 1)
Quarter: 2020Q1

REPORT INFORMATION
  Report Type: Spontaneous
  Country: PL (occurrence: PL)
  Receive Date: 20200107
  Receipt Date: 20200107
  Transmission Date: 20200409
  Serious: Yes (Hospitalization, Other)
  Sender: FDA-Public Use
  Company Number: PL-MYLANLABS-2020M1001313

PATIENT
  Age: 60 Year
  Sex: Female

DRUGS (19)
  1. FLUDARABINE [Suspect]
     Active Substance: FLUDARABINE PHOSPHATE
     Dosage: 42.5 MG, QD, DAY 1-3
  2. CYCLOPHOSPHAMIDE. [Suspect]
     Active Substance: CYCLOPHOSPHAMIDE
     Indication: CHRONIC LYMPHOCYTIC LEUKAEMIA STAGE 4
     Dosage: 1000 MG, QD DAY 1 (FIRST LINE OF TREATMENT)
  3. RITUXIMAB. [Suspect]
     Active Substance: RITUXIMAB
     Dosage: 850 MG, QD, DAY 1
  4. CYCLOPHOSPHAMIDE. [Suspect]
     Active Substance: CYCLOPHOSPHAMIDE
     Dosage: 400 MG, QD DAYS 1-3
  5. DEXAMETHASONE. [Suspect]
     Active Substance: DEXAMETHASONE
     Dosage: 40 MG, QD DAY 1 (FIRST LINE TREATMENT)
  6. CYCLOPHOSPHAMIDE. [Suspect]
     Active Substance: CYCLOPHOSPHAMIDE
     Dosage: 425 MG, QD DAYS 1-3
  7. CYCLOPHOSPHAMIDE. [Suspect]
     Active Substance: CYCLOPHOSPHAMIDE
     Dosage: 1300 MG, QD DAY 1 (SECOND LINE OF TREATMENT)
  8. METFORMIN [Concomitant]
     Active Substance: METFORMIN HYDROCHLORIDE
     Indication: STEROID DIABETES
     Dosage: 850 MG, QD
  9. FLUDARABINE [Suspect]
     Active Substance: FLUDARABINE PHOSPHATE
     Indication: CHRONIC LYMPHOCYTIC LEUKAEMIA STAGE 4
     Dosage: 40 MG, QD, DAY 1-3
  10. RITUXIMAB. [Suspect]
     Active Substance: RITUXIMAB
     Indication: CHRONIC LYMPHOCYTIC LEUKAEMIA STAGE 4
     Dosage: 600 MG, QD,, DAY 1
  11. METHYLPREDNISOLONE. [Concomitant]
     Active Substance: METHYLPREDNISOLONE
     Indication: CHRONIC LYMPHOCYTIC LEUKAEMIA RECURRENT
     Dosage: UNK
  12. RITUXIMAB. [Suspect]
     Active Substance: RITUXIMAB
     Dosage: 650, MG/DAY DAY 1 (FIRST LINE TREATMENT)
  13. CYCLOPHOSPHAMIDE. [Suspect]
     Active Substance: CYCLOPHOSPHAMIDE
     Dosage: 400 MG, QD DAYS 1-3
  14. RITUXIMAB. [Suspect]
     Active Substance: RITUXIMAB
     Dosage: 640 MG, QD, DAY 1
  15. RITUXIMAB. [Suspect]
     Active Substance: RITUXIMAB
     Dosage: 650 MG/DAY DAY 1 (SECOND LINE TREATMENT)
  16. FLUDARABINE [Suspect]
     Active Substance: FLUDARABINE PHOSPHATE
     Dosage: 40 MG, QD, DAY 1-3
  17. DEXAMETHASONE. [Suspect]
     Active Substance: DEXAMETHASONE
     Indication: CHRONIC LYMPHOCYTIC LEUKAEMIA STAGE 4
     Dosage: 12 MG, QD DAY 1-7 (SECOND LINE TREATMENT)
  18. SIMVASTATIN. [Concomitant]
     Active Substance: SIMVASTATIN
     Indication: HYPERCHOLESTEROLAEMIA
     Dosage: 20 MG, QD
  19. RAMIPRIL. [Concomitant]
     Active Substance: RAMIPRIL
     Indication: HYPERTENSION
     Dosage: 5 MG, QD

REACTIONS (9)
  - Dyspnoea exertional [Unknown]
  - Malaise [Unknown]
  - Chest pain [Unknown]
  - Fatigue [Unknown]
  - Heart rate increased [Unknown]
  - Tachycardia [Unknown]
  - Breath sounds abnormal [Unknown]
  - Pulmonary embolism [Unknown]
  - Pyrexia [Unknown]
